FAERS Safety Report 7034060-9 (Version None)
Quarter: 2010Q4

REPORT INFORMATION
  Report Type: 
  Country: None (occurrence: None)
  Receive Date: 20101006
  Receipt Date: 20100924
  Transmission Date: 20110411
  Serious: Yes (Death)
  Sender: FDA-Public Use
  Company Number: 2010-2668

PATIENT
  Age: 69 Year
  Sex: Female
  Weight: 72 kg

DRUGS (1)
  1. MEGESTROL ACETATE [Suspect]
     Indication: ENDOMETRIAL CANCER
     Dosage: 160 MG (160 MG, 1 IN 1 D), ORAL
     Route: 048
     Dates: start: 20100629

REACTIONS (2)
  - CARDIOPULMONARY FAILURE [None]
  - PULMONARY EMBOLISM [None]
